FAERS Safety Report 18278931 (Version 1)
Quarter: 2020Q3

REPORT INFORMATION
  Report Type: Spontaneous
  Country: JP (occurrence: JP)
  Receive Date: 20200917
  Receipt Date: 20200917
  Transmission Date: 20201103
  Serious: Yes (Other)
  Sender: FDA-Public Use
  Company Number: JP-LUNDBECK-DKLU3020980

PATIENT
  Age: 14 Month
  Sex: Male
  Weight: 8 kg

DRUGS (17)
  1. MAGNESIUM OXIDE. [Concomitant]
     Active Substance: MAGNESIUM OXIDE
     Indication: PRODUCT USED FOR UNKNOWN INDICATION
     Route: 065
     Dates: start: 20200610
  2. ACTH [Suspect]
     Active Substance: CORTICOTROPIN
     Indication: INFANTILE SPASMS
     Route: 030
     Dates: start: 20200716
  3. ZONISAMIDE. [Concomitant]
     Active Substance: ZONISAMIDE
     Indication: INFANTILE SPASMS
     Route: 065
     Dates: start: 20200615, end: 20200829
  4. CARBAZON [Concomitant]
     Indication: PRODUCT USED FOR UNKNOWN INDICATION
     Route: 065
  5. FAMOTIDINE. [Concomitant]
     Active Substance: FAMOTIDINE
     Indication: PROPHYLAXIS
     Route: 065
     Dates: start: 20200728, end: 20200810
  6. SABRIL [Suspect]
     Active Substance: VIGABATRIN
     Indication: INFANTILE SPASMS
     Route: 048
     Dates: start: 20200629
  7. SABRIL [Suspect]
     Active Substance: VIGABATRIN
     Route: 048
     Dates: start: 20200716
  8. SABRIL [Suspect]
     Active Substance: VIGABATRIN
     Route: 048
     Dates: start: 20200726
  9. FAMOTIDINE. [Concomitant]
     Active Substance: FAMOTIDINE
     Indication: INVESTIGATION
  10. SABRIL [Suspect]
     Active Substance: VIGABATRIN
     Route: 048
     Dates: start: 20200721
  11. SABRIL [Suspect]
     Active Substance: VIGABATRIN
     Route: 048
     Dates: start: 20200731, end: 20200805
  12. PHENOBARBITAL. [Concomitant]
     Active Substance: PHENOBARBITAL
     Indication: PRODUCT USED FOR UNKNOWN INDICATION
     Route: 065
     Dates: start: 20190512
  13. AMBROXOL HYDROCHLORIDE [Concomitant]
     Active Substance: AMBROXOL HYDROCHLORIDE
     Indication: PRODUCT USED FOR UNKNOWN INDICATION
     Route: 065
  14. SABRIL [Suspect]
     Active Substance: VIGABATRIN
     Route: 048
     Dates: start: 20200702
  15. SABRIL [Suspect]
     Active Substance: VIGABATRIN
     Route: 048
     Dates: start: 20200705
  16. PRANLUKAST [Concomitant]
     Active Substance: PRANLUKAST
     Indication: PRODUCT USED FOR UNKNOWN INDICATION
     Route: 065
  17. ACTH [Suspect]
     Active Substance: CORTICOTROPIN
     Route: 030
     Dates: start: 20200728, end: 20200816

REACTIONS (6)
  - Bronchitis [Recovered/Resolved]
  - Insomnia [Recovering/Resolving]
  - Hypokalaemia [Recovered/Resolved]
  - Hypertension [Recovered/Resolved]
  - Diarrhoea [Recovered/Resolved]
  - Drug ineffective [Unknown]

NARRATIVE: CASE EVENT DATE: 2020
